FAERS Safety Report 5297225-2 (Version None)
Quarter: 2007Q2

REPORT INFORMATION
  Report Type: 
  Country: None (occurrence: None)
  Receive Date: 20070416
  Receipt Date: 20070404
  Transmission Date: 20071010
  Serious: Yes (Death, Other)
  Sender: FDA-Public Use
  Company Number: GB-JNJFOC-20070401212

PATIENT
  Sex: Female
  Weight: 54 kg

DRUGS (6)
  1. REMICADE [Suspect]
     Indication: RHEUMATOID ARTHRITIS
     Route: 042
  2. METHOTRAXATE [Concomitant]
  3. CO-CODAMOL [Concomitant]
  4. DIAZEPAM [Concomitant]
  5. FOLIC ACID [Concomitant]
  6. SENOKOT [Concomitant]

REACTIONS (1)
  - DEATH [None]
